FAERS Safety Report 5817810-6 (Version None)
Quarter: 2008Q3

REPORT INFORMATION
  Report Type: 
  Country: None (occurrence: None)
  Receive Date: 20080722
  Receipt Date: 20080707
  Transmission Date: 20090109
  Serious: Yes (Death, Hospitalization)
  Sender: FDA-Public Use
  Company Number: TW-GENENTECH-264620

PATIENT
  Age: 62 Year
  Sex: Male

DRUGS (5)
  1. MABTHERA [Suspect]
     Indication: RHEUMATOID ARTHRITIS
     Dosage: 1000 MG, UNK
     Route: 051
     Dates: start: 20080107
  2. UNSPECIFIED MEDICATIONS [Suspect]
     Indication: GASTRITIS
     Dosage: UNK
     Route: 048
     Dates: start: 20080501, end: 20080601
  3. DMARD DRUG (UNK INGREDIENTS) [Suspect]
     Indication: RHEUMATOID ARTHRITIS
  4. METHOTREXATE SODIUM [Suspect]
     Indication: RHEUMATOID ARTHRITIS
  5. STEROID NOS [Concomitant]
     Indication: DRUG USE FOR UNKNOWN INDICATION
     Dosage: UNK
     Dates: end: 20080601

REACTIONS (1)
  - SEPSIS [None]
